FAERS Safety Report 9521140 (Version 1)
Quarter: 2013Q3

REPORT INFORMATION
  Report Type: Spontaneous
  Country: US (occurrence: None)
  Receive Date: 20130911
  Receipt Date: 20130911
  Transmission Date: 20140515
  Serious: No
  Sender: FDA-Public Use
  Company Number: AEUSA201300019

PATIENT
  Age: 31 Year
  Sex: Male
  Weight: 104.33 kg

DRUGS (4)
  1. GAMUNEX [Suspect]
     Indication: NEUROPATHY PERIPHERAL
     Route: 042
     Dates: start: 2011
  2. LYRICA [Concomitant]
  3. CYMBALTA [Concomitant]
  4. TRILEPTAL [Concomitant]

REACTIONS (2)
  - Herpes simplex serology positive [None]
  - Herpes simplex [None]
